FAERS Safety Report 10004231 (Version 1)
Quarter: 2014Q1

REPORT INFORMATION
  Report Type: Spontaneous
  Country: US (occurrence: US)
  Receive Date: 20140312
  Receipt Date: 20140312
  Transmission Date: 20141002
  Serious: Yes (Hospitalization, Other)
  Sender: FDA-Public Use
  Company Number: CHPA2014US003664

PATIENT
  Age: 42 Year
  Sex: Male

DRUGS (3)
  1. NODOZ [Suspect]
     Dosage: 24 G, ONCE/SINGLE
     Route: 048
  2. LITHIUM [Concomitant]
     Dosage: UNK
  3. OLANZAPINE [Concomitant]
     Dosage: UNK

REACTIONS (11)
  - Renal failure acute [Recovered/Resolved]
  - Rhabdomyolysis [Recovered/Resolved]
  - Traumatic liver injury [Recovered/Resolved]
  - Pneumonia aspiration [Recovered/Resolved]
  - Intentional overdose [Recovered/Resolved]
  - Suicide attempt [Recovered/Resolved]
  - Loss of consciousness [Recovered/Resolved]
  - Diarrhoea [Recovered/Resolved]
  - Vomiting [Recovered/Resolved]
  - Nausea [Recovered/Resolved]
  - Restlessness [Recovered/Resolved]
